FAERS Safety Report 17462839 (Version 2)
Quarter: 2020Q2

REPORT INFORMATION
  Report Type: Spontaneous
  Country: US (occurrence: US)
  Receive Date: 20200226
  Receipt Date: 20200402
  Transmission Date: 20200713
  Serious: Yes (Other)
  Sender: FDA-Public Use
  Company Number: US-PFIZER INC-2020070092

PATIENT
  Age: 10 Year
  Sex: Female

DRUGS (2)
  1. CHILDRENS DIMETAPP NIGHTTIME COLD AND CONGESTION [Suspect]
     Active Substance: DIPHENHYDRAMINE HYDROCHLORIDE\PHENYLEPHRINE HYDROCHLORIDE
     Indication: COUGH
     Dosage: 10 ML, UNK (ONE DOSE BEFORE BED)
     Route: 048
     Dates: start: 202002, end: 202002
  2. CHILDRENS DIMETAPP NIGHTTIME COLD AND CONGESTION [Suspect]
     Active Substance: DIPHENHYDRAMINE HYDROCHLORIDE\PHENYLEPHRINE HYDROCHLORIDE
     Indication: NASAL CONGESTION
     Dosage: UNK

REACTIONS (4)
  - Vision blurred [Recovered/Resolved]
  - Night sweats [Recovered/Resolved]
  - Emotional disorder [Recovered/Resolved]
  - Hallucination [Recovered/Resolved]

NARRATIVE: CASE EVENT DATE: 202002
